FAERS Safety Report 19886349 (Version 1)
Quarter: 2021Q3

REPORT INFORMATION
  Report Type: Spontaneous
  Country: DE (occurrence: DE)
  Receive Date: 20210927
  Receipt Date: 20210927
  Transmission Date: 20211014
  Serious: Yes (Death)
  Sender: FDA-Public Use
  Company Number: DE-DRREDDYS-SPO/GER/21/0140345

PATIENT
  Age: 5 Day
  Sex: Male
  Weight: 2.6 kg

DRUGS (6)
  1. PYRIDOXINE HYDROCHLORIDE. [Suspect]
     Active Substance: PYRIDOXINE HYDROCHLORIDE
     Indication: NEONATAL EPILEPTIC SEIZURE
     Dosage: DAILY DOSE: 200 MG MILLGRAM(S) EVERY DAYS 2 SEPARATED DOSES
     Route: 042
     Dates: start: 20210105
  2. LEVETIRACETAM. [Suspect]
     Active Substance: LEVETIRACETAM
     Indication: NEONATAL EPILEPTIC SEIZURE
     Route: 042
     Dates: start: 20210105, end: 20210108
  3. VALPROIC ACID. [Concomitant]
     Active Substance: VALPROIC ACID
     Indication: NEONATAL EPILEPTIC SEIZURE
     Route: 042
     Dates: start: 20210108
  4. PHENOBARBITAL. [Suspect]
     Active Substance: PHENOBARBITAL
     Indication: NEONATAL EPILEPTIC SEIZURE
     Route: 042
     Dates: start: 20210105, end: 20210108
  5. CHLORAL HYDRATE [Concomitant]
     Active Substance: CHLORAL HYDRATE
     Indication: SEDATION
     Route: 042
  6. DIAZEPAM. [Concomitant]
     Active Substance: DIAZEPAM
     Indication: SEDATION
     Route: 042

REACTIONS (1)
  - Necrotising enterocolitis neonatal [Fatal]

NARRATIVE: CASE EVENT DATE: 20210109
